FAERS Safety Report 8355724-0 (Version None)
Quarter: 2012Q2

REPORT INFORMATION
  Report Type: 
  Country: None (occurrence: None)
  Receive Date: 20120510
  Receipt Date: 20120427
  Transmission Date: 20120825
  Serious: Yes (Hospitalization, Other)
  Sender: FDA-Public Use
  Company Number: JPI-P-021174

PATIENT
  Age: 65 Year
  Sex: Female
  Weight: 79.8331 kg

DRUGS (11)
  1. TOPIRAMATE [Concomitant]
  2. HYDROCHLOROTHIAZIDE [Concomitant]
  3. MODAFINIL [Concomitant]
  4. FLUOXETINE HYDROCHLORIDE [Concomitant]
  5. ESOMEPRAZOLE MAGNESIUM [Concomitant]
  6. AMLODIPINE BESYLATE [Concomitant]
  7. LEVOTHYROXINE SODIUM [Concomitant]
  8. CELECOXIB [Concomitant]
  9. VITAMIN D [Concomitant]
  10. XYREM [Suspect]
     Indication: CATAPLEXY
     Dosage: 9 GM (4.5 GM,2 IN 1 D),ORAL, ORAL, 7 GRN (3.5 GM,2 IN 1 D),ORAL
     Route: 048
     Dates: start: 20040820
  11. XYREM [Suspect]
     Indication: CATAPLEXY
     Dosage: 9 GM (4.5 GM,2 IN 1 D),ORAL, ORAL, 7 GRN (3.5 GM,2 IN 1 D),ORAL
     Route: 048
     Dates: start: 20050809

REACTIONS (8)
  - IMPAIRED DRIVING ABILITY [None]
  - WEIGHT DECREASED [None]
  - WALKING DISABILITY [None]
  - BONE DISORDER [None]
  - FOOT FRACTURE [None]
  - DIZZINESS [None]
  - ARTHRALGIA [None]
  - GAIT DISTURBANCE [None]
